FAERS Safety Report 14685746 (Version 1)
Quarter: 2018Q1

REPORT INFORMATION
  Report Type: Report from Study
  Country: US (occurrence: US)
  Receive Date: 20180327
  Receipt Date: 20180327
  Transmission Date: 20180509
  Serious: Yes (Death, Other)
  Sender: FDA-Public Use
  Company Number: US-MYLANLABS-2018M1020868

PATIENT
  Age: 42 Year
  Sex: Male

DRUGS (2)
  1. METOPROLOL. [Suspect]
     Active Substance: METOPROLOL
     Indication: PRODUCT USED FOR UNKNOWN INDICATION
     Route: 065
  2. METAMFETAMINE [Suspect]
     Active Substance: METHAMPHETAMINE
     Indication: PRODUCT USED FOR UNKNOWN INDICATION
     Route: 065

REACTIONS (8)
  - Depressed level of consciousness [Unknown]
  - Acute lung injury [Unknown]
  - Coma [Unknown]
  - Hepatotoxicity [Unknown]
  - Acute respiratory distress syndrome [Unknown]
  - Toxicity to various agents [Fatal]
  - Hypotension [Unknown]
  - Metabolic acidosis [Unknown]
